FAERS Safety Report 25675074 (Version 2)
Quarter: 2025Q4

REPORT INFORMATION
  Report Type: Spontaneous
  Country: JP (occurrence: JP)
  Receive Date: 20250813
  Receipt Date: 20251202
  Transmission Date: 20260117
  Serious: Yes (Other)
  Sender: IPSEN BIOPHARMACEUTICALS, INC.
  Company Number: JP-IPSEN Group, Research and Development-2025-19650

PATIENT
  Age: 76 Year
  Sex: Male

DRUGS (1)
  1. TAZVERIK [Suspect]
     Active Substance: TAZEMETOSTAT HYDROBROMIDE
     Indication: Product used for unknown indication
     Dosage: 1600 MG PER DAY
     Route: 048

REACTIONS (3)
  - Oesophageal carcinoma [Not Recovered/Not Resolved]
  - Joint arthroplasty [Unknown]
  - Platelet count decreased [Unknown]

NARRATIVE: CASE EVENT DATE: 20250701
